FAERS Safety Report 4295316-6 (Version None)
Quarter: 2004Q1

REPORT INFORMATION
  Report Type: 
  Country: None (occurrence: None)
  Receive Date: 20040216
  Receipt Date: 20030602
  Transmission Date: 20041129
  Serious: No
  Sender: FDA-Public Use
  Company Number: US-GLAXOSMITHKLINE-A0410609A

PATIENT
  Age: 55 Year
  Sex: Female

DRUGS (4)
  1. LAMICTAL [Suspect]
     Dosage: 50MG TWICE PER DAY
     Route: 048
     Dates: start: 20030403, end: 20030502
  2. LEXAPRO [Concomitant]
  3. LORAZEPAM [Concomitant]
     Dosage: 1MG PER DAY
  4. INDERAL [Concomitant]
     Dosage: 40MG PER DAY

REACTIONS (2)
  - RASH [None]
  - RASH GENERALISED [None]
